FAERS Safety Report 18958318 (Version 1)
Quarter: 2021Q1

REPORT INFORMATION
  Report Type: Spontaneous
  Country: US (occurrence: US)
  Receive Date: 20210302
  Receipt Date: 20210302
  Transmission Date: 20210420
  Serious: Yes (Other)
  Sender: FDA-Public Use
  Company Number: US-MYLANLABS-2021M1012500

PATIENT
  Sex: Female

DRUGS (8)
  1. GABAPENTIN. [Suspect]
     Active Substance: GABAPENTIN
     Indication: BIPOLAR DISORDER
  2. BUPROPION. [Interacting]
     Active Substance: BUPROPION
     Indication: POST-TRAUMATIC STRESS DISORDER
  3. QUETIAPINE. [Interacting]
     Active Substance: QUETIAPINE
     Indication: BIPOLAR DISORDER
     Dosage: 200 MILLIGRAM, QD
     Route: 065
  4. VENLAFAXINE [Interacting]
     Active Substance: VENLAFAXINE HYDROCHLORIDE
     Indication: POST-TRAUMATIC STRESS DISORDER
  5. BUPROPION. [Interacting]
     Active Substance: BUPROPION
     Indication: BIPOLAR DISORDER
     Dosage: 300 MILLIGRAM, QD
     Route: 065
  6. VENLAFAXINE [Suspect]
     Active Substance: VENLAFAXINE HYDROCHLORIDE
     Indication: BIPOLAR DISORDER
     Dosage: 150 MILLIGRAM, QD
     Route: 065
  7. GABAPENTIN. [Suspect]
     Active Substance: GABAPENTIN
     Indication: POST-TRAUMATIC STRESS DISORDER
     Dosage: 1200 MILLIGRAM, TID, 3 TIMES DAILY
     Route: 065
  8. QUETIAPINE. [Interacting]
     Active Substance: QUETIAPINE
     Indication: POST-TRAUMATIC STRESS DISORDER

REACTIONS (6)
  - Drug level increased [Unknown]
  - Off label use [Unknown]
  - Drug interaction [Unknown]
  - Toxicity to various agents [Unknown]
  - False positive investigation result [Unknown]
  - Maternal exposure during pregnancy [Recovered/Resolved]
